FAERS Safety Report 25949318 (Version 1)
Quarter: 2025Q4

REPORT INFORMATION
  Report Type: Spontaneous
  Country: US (occurrence: US)
  Receive Date: 20251022
  Receipt Date: 20251022
  Transmission Date: 20260118
  Serious: No
  Sender: MERCK SHARP & DOHME LLC
  Company Number: US-009507513-2335173

PATIENT
  Age: 57 Year
  Sex: Male

DRUGS (3)
  1. APREPITANT [Suspect]
     Active Substance: APREPITANT
     Indication: Cyclic vomiting syndrome
     Route: 048
  2. ONDANSETRON [Concomitant]
     Active Substance: ONDANSETRON
     Indication: Cyclic vomiting syndrome
  3. METOCLOPRAMIDE [Concomitant]
     Active Substance: METOCLOPRAMIDE
     Indication: Cyclic vomiting syndrome

REACTIONS (1)
  - Product use in unapproved indication [Unknown]
